FAERS Safety Report 6370804-7 (Version None)
Quarter: 2009Q3

REPORT INFORMATION
  Report Type: 
  Country: None (occurrence: None)
  Receive Date: 20090923
  Receipt Date: 20070627
  Transmission Date: 20100115
  Serious: Yes (Other)
  Sender: FDA-Public Use
  Company Number: US-ASTRAZENECA-2006UW23921

PATIENT
  Sex: Female
  Weight: 192.8 kg

DRUGS (12)
  1. SEROQUEL [Suspect]
     Dosage: 300-900 MG
     Route: 048
     Dates: start: 20031015, end: 20061120
  2. OLANZAPINE [Concomitant]
  3. PROZAC [Concomitant]
     Route: 048
     Dates: start: 19980930
  4. XANAX [Concomitant]
     Dosage: 2-4 MG
     Dates: start: 19950107
  5. ZYPREXA [Concomitant]
     Dosage: 10 MG DISPENSED
     Dates: start: 19980326
  6. DEPAKOTE [Concomitant]
     Dosage: 200-500 MG DISPENSED
     Dates: start: 19951127
  7. CLONAZEPAM [Concomitant]
     Dosage: 1-2 MG DISPENSED
     Dates: start: 19980205
  8. CLONIDINE [Concomitant]
     Dates: start: 19981102
  9. PANCREASE [Concomitant]
     Dosage: 2 MG
     Dates: start: 20000725
  10. GLUCOVANCE [Concomitant]
     Dosage: 1.25/250-5/500 MG DISPENSED
     Dates: start: 20001117
  11. LIPITOR [Concomitant]
     Dates: start: 20010402
  12. TYLENOL (CAPLET) [Concomitant]
     Indication: ARTHRITIS
     Dosage: AS REQUIRED
     Dates: start: 20021031

REACTIONS (1)
  - PANCREATITIS [None]
